FAERS Safety Report 24174488 (Version 1)
Quarter: 2024Q3

REPORT INFORMATION
  Report Type: Spontaneous
  Country: CN (occurrence: CN)
  Receive Date: 20240805
  Receipt Date: 20240805
  Transmission Date: 20241017
  Serious: Yes (Hospitalization)
  Sender: ELI LILLY AND CO
  Company Number: CN-Merck Healthcare KGaA-2024040633

PATIENT
  Age: 58 Year
  Sex: Male
  Weight: 68 kg

DRUGS (4)
  1. ERBITUX [Suspect]
     Active Substance: CETUXIMAB
     Indication: Colon neoplasm
     Dosage: 800 MG, UNKNOWN
     Route: 041
     Dates: start: 20240625
  2. OXALIPLATIN [Suspect]
     Active Substance: OXALIPLATIN
     Indication: Colon neoplasm
     Dosage: 140 MG, DAILY
     Route: 041
     Dates: start: 20240625, end: 20240625
  3. LEUCOVORIN CALCIUM [Suspect]
     Active Substance: LEUCOVORIN CALCIUM
     Indication: Colon neoplasm
     Dosage: .7 G, DAILY
     Route: 041
     Dates: start: 20240625, end: 20240625
  4. FLUOROURACIL [Suspect]
     Active Substance: FLUOROURACIL
     Indication: Colon neoplasm
     Dosage: .7 G, DAILY
     Route: 041
     Dates: start: 20240625, end: 20240625

REACTIONS (1)
  - Granulocyte count decreased [Recovering/Resolving]

NARRATIVE: CASE EVENT DATE: 20240715
